FAERS Safety Report 25951046 (Version 1)
Quarter: 2025Q4

REPORT INFORMATION
  Report Type: Report from Study
  Country: JP (occurrence: JP)
  Receive Date: 20251023
  Receipt Date: 20251023
  Transmission Date: 20260118
  Serious: Yes (Other)
  Sender: RECORDATI
  Company Number: JP-002147023-PHJP2019JP006311

PATIENT
  Age: 61 Year
  Sex: Male

DRUGS (15)
  1. PASIREOTIDE [Suspect]
     Active Substance: PASIREOTIDE
     Indication: Acromegaly
     Dosage: 40 MILLIGRAM
     Route: 030
     Dates: start: 20170130
  2. PASIREOTIDE [Suspect]
     Active Substance: PASIREOTIDE
     Dosage: 40 MILLIGRAM
     Route: 030
     Dates: start: 20170228
  3. PASIREOTIDE [Suspect]
     Active Substance: PASIREOTIDE
     Dosage: 40 MILLIGRAM
     Route: 030
     Dates: start: 20170327
  4. PASIREOTIDE [Suspect]
     Active Substance: PASIREOTIDE
     Dosage: 40 MILLIGRAM
     Route: 030
     Dates: start: 20170428
  5. PASIREOTIDE [Suspect]
     Active Substance: PASIREOTIDE
     Dosage: 60 MILLIGRAM
     Route: 030
     Dates: start: 20170526
  6. PASIREOTIDE [Suspect]
     Active Substance: PASIREOTIDE
     Dosage: 60 MILLIGRAM
     Route: 030
     Dates: start: 20170622
  7. PASIREOTIDE [Suspect]
     Active Substance: PASIREOTIDE
     Dosage: 60 MILLIGRAM
     Route: 030
     Dates: start: 20170724
  8. PASIREOTIDE [Suspect]
     Active Substance: PASIREOTIDE
     Dosage: 60 MILLIGRAM
     Route: 030
     Dates: start: 20170821
  9. PASIREOTIDE [Suspect]
     Active Substance: PASIREOTIDE
     Dosage: 60 MILLIGRAM
     Route: 030
     Dates: start: 20170915
  10. AMLODIPINE [Concomitant]
     Active Substance: AMLODIPINE BESYLATE
     Indication: Product used for unknown indication
  11. MICARDIS [Concomitant]
     Active Substance: TELMISARTAN
     Indication: Product used for unknown indication
  12. NEXIUM [Concomitant]
     Active Substance: ESOMEPRAZOLE MAGNESIUM
     Indication: Product used for unknown indication
  13. LEVOTHYROXINE SODIUM [Concomitant]
     Active Substance: LEVOTHYROXINE SODIUM
     Indication: Product used for unknown indication
  14. CORTRIL [Concomitant]
     Active Substance: HYDROCORTISONE
     Indication: Product used for unknown indication
  15. MAGNESIUM OXIDE [Concomitant]
     Active Substance: MAGNESIUM OXIDE
     Indication: Product used for unknown indication

REACTIONS (5)
  - Hyperkalaemia [Recovered/Resolved]
  - Hyperglycaemia [Recovered/Resolved]
  - Hyperphosphatasaemia [Not Recovered/Not Resolved]
  - Neoplasm progression [Not Recovered/Not Resolved]
  - Therapeutic product effect incomplete [Not Recovered/Not Resolved]

NARRATIVE: CASE EVENT DATE: 20170215
